FAERS Safety Report 19106095 (Version 1)
Quarter: 2021Q2

REPORT INFORMATION
  Report Type: Spontaneous
  Country: TR (occurrence: TR)
  Receive Date: 20210407
  Receipt Date: 20210407
  Transmission Date: 20210717
  Serious: Yes (Hospitalization, Other)
  Sender: FDA-Public Use
  Company Number: TR-GLAXOSMITHKLINE-TR2021GSK075319

PATIENT
  Age: 18 Year
  Sex: Female

DRUGS (4)
  1. BUPROPION HYDROCHLORIDE XL [Suspect]
     Active Substance: BUPROPION HYDROCHLORIDE
     Indication: NICOTINE DEPENDENCE
  2. RISPERIDONE. [Concomitant]
     Active Substance: RISPERIDONE
     Indication: DEPRESSION
     Dosage: 1 MG/DAY
  3. RISPERIDONE. [Concomitant]
     Active Substance: RISPERIDONE
     Indication: NICOTINE DEPENDENCE
  4. BUPROPION HYDROCHLORIDE XL [Suspect]
     Active Substance: BUPROPION HYDROCHLORIDE
     Indication: DEPRESSION
     Dosage: 150 MG, 28 TABLETS

REACTIONS (10)
  - Dystonia [Recovered/Resolved]
  - Swollen tongue [Recovered/Resolved]
  - Glossodynia [Recovered/Resolved]
  - Aphasia [Recovered/Resolved]
  - Sedation [Recovered/Resolved]
  - Suicide attempt [Recovered/Resolved]
  - Toxicity to various agents [Recovered/Resolved]
  - Generalised tonic-clonic seizure [Recovered/Resolved]
  - Dysphagia [Recovered/Resolved]
  - Status epilepticus [Recovered/Resolved]
